FAERS Safety Report 24559683 (Version 2)
Quarter: 2024Q4

REPORT INFORMATION
  Report Type: Spontaneous
  Country: HR (occurrence: HR)
  Receive Date: 20241029
  Receipt Date: 20241101
  Transmission Date: 20250114
  Serious: Yes (Other)
  Sender: ASTELLAS
  Company Number: HR-ASTELLAS-2024-AER-014994

PATIENT
  Sex: Female

DRUGS (1)
  1. PADCEV [Suspect]
     Active Substance: ENFORTUMAB VEDOTIN-EJFV
     Indication: Bladder cancer
     Dosage: 2ND LINE EV - 15.10.-11X +, 69 KG/85 MG EV (1.25MG/KG)
     Route: 065
     Dates: start: 202407

REACTIONS (5)
  - Lenticular opacities [Unknown]
  - Conjunctivitis [Unknown]
  - Lacrimation decreased [Unknown]
  - Paraesthesia [Unknown]
  - Decreased appetite [Unknown]

NARRATIVE: CASE EVENT DATE: 20240101
